FAERS Safety Report 6280505-1 (Version None)
Quarter: 2009Q3

REPORT INFORMATION
  Report Type: 
  Country: None (occurrence: None)
  Receive Date: 20090724
  Receipt Date: 20080813
  Transmission Date: 20100115
  Serious: No
  Sender: FDA-Public Use
  Company Number: A0742631A

PATIENT
  Age: 49 Year
  Sex: Female

DRUGS (7)
  1. AVANDIA [Suspect]
     Dosage: 4MG PER DAY
     Route: 048
     Dates: start: 20040101
  2. METFORMIN HCL [Concomitant]
  3. TRICOR [Concomitant]
  4. NEXIUM [Concomitant]
  5. PROZAC [Concomitant]
  6. KLONOPIN [Concomitant]
  7. TEMAZEPAM [Concomitant]

REACTIONS (7)
  - BACK PAIN [None]
  - CHEST PAIN [None]
  - GASTROOESOPHAGEAL REFLUX DISEASE [None]
  - MYODESOPSIA [None]
  - POLLAKIURIA [None]
  - VISION BLURRED [None]
  - WEIGHT DECREASED [None]
